FAERS Safety Report 6389679-5 (Version None)
Quarter: 2009Q4

REPORT INFORMATION
  Report Type: 
  Country: None (occurrence: None)
  Receive Date: 20091006
  Receipt Date: 20090922
  Transmission Date: 20100525
  Serious: Yes (Hospitalization)
  Sender: FDA-Public Use
  Company Number: BR-MEDIMMUNE-MEDI-0008974

PATIENT
  Sex: Male
  Weight: 6 kg

DRUGS (11)
  1. SYNAGIS [Suspect]
     Dates: start: 20090527, end: 20090527
  2. CAPTOPRIL [Concomitant]
  3. FERROUS SULFATE TAB [Concomitant]
  4. FUROSEMIDE [Concomitant]
  5. HYDROCHLOROTHIAZIDE [Concomitant]
  6. SILDENAFIL CITRATE [Concomitant]
  7. RANITIDINE [Concomitant]
  8. BROMOPRIDE [Concomitant]
  9. MULTI-VITAMINS [Concomitant]
  10. IPRATROPIUM BROMIDE [Concomitant]
  11. FENOTEROL HYDROBROMIDE [Concomitant]

REACTIONS (3)
  - BRONCHITIS [None]
  - PULMONARY HYPERTENSION [None]
  - RESPIRATORY FAILURE [None]
